FAERS Safety Report 16876024 (Version 1)
Quarter: 2019Q4

REPORT INFORMATION
  Report Type: Spontaneous
  Country: US (occurrence: US)
  Receive Date: 20191002
  Receipt Date: 20191002
  Transmission Date: 20200122
  Serious: No
  Sender: FDA-Public Use
  Company Number: US-GW PHARMA-201908USGW2796

PATIENT

DRUGS (2)
  1. EPIDIOLEX [Suspect]
     Active Substance: CANNABIDIOL
     Indication: PRODUCT USED FOR UNKNOWN INDICATION
     Dosage: 500 TO 600 (UNIT NOT REPORTED), UNK
     Route: 048
     Dates: start: 2019
  2. PHENYTOIN. [Suspect]
     Active Substance: PHENYTOIN
     Indication: PRODUCT USED FOR UNKNOWN INDICATION
     Dosage: UNK
     Route: 065

REACTIONS (3)
  - Seizure [Unknown]
  - Abnormal behaviour [Unknown]
  - Anticonvulsant drug level below therapeutic [Unknown]

NARRATIVE: CASE EVENT DATE: 2019
